FAERS Safety Report 5284361-X (Version None)
Quarter: 2007Q2

REPORT INFORMATION
  Report Type: 
  Country: None (occurrence: None)
  Receive Date: 20070403
  Receipt Date: 20070319
  Transmission Date: 20071010
  Serious: Yes (Other)
  Sender: FDA-Public Use
  Company Number: GB-KINGPHARMUSA00001-K200700357

PATIENT

DRUGS (2)
  1. PROLOPRIM [Suspect]
     Dosage: 200 MG, BID
     Route: 048
  2. PROLOPRIM [Suspect]
     Dosage: 200 MG, SINGLE
     Route: 048

REACTIONS (11)
  - ARTHRALGIA [None]
  - CHILLS [None]
  - EYE PAIN [None]
  - HEADACHE [None]
  - INTRAOCULAR PRESSURE INCREASED [None]
  - MALAISE [None]
  - MYALGIA [None]
  - OCULAR HYPERAEMIA [None]
  - PRURITUS [None]
  - UVEITIS [None]
  - VISUAL DISTURBANCE [None]
